FAERS Safety Report 5562715-1 (Version None)
Quarter: 2007Q4

REPORT INFORMATION
  Report Type: 
  Country: None (occurrence: None)
  Receive Date: 20071211
  Receipt Date: 20071211
  Transmission Date: 20080405
  Serious: No
  Sender: FDA-Public Use
  Company Number: None

PATIENT

DRUGS (1)
  1. CIPRO [Suspect]

REACTIONS (8)
  - ANXIETY [None]
  - BRAIN DAMAGE [None]
  - DIVORCED [None]
  - LOSS OF EMPLOYMENT [None]
  - MALAISE [None]
  - NEUROTOXICITY [None]
  - PAIN [None]
  - PANIC REACTION [None]
